FAERS Safety Report 8771683 (Version 3)
Quarter: 2012Q4

REPORT INFORMATION
  Report Type: 
  Country: JP (occurrence: JP)
  Receive Date: 20120905
  Receipt Date: 20120907
  Transmission Date: 20130627
  Serious: Yes (Hospitalization)
  Sender: FDA-Public Use
  Company Number: JP-ROCHE-1108730

PATIENT
  Age: 7 Year
  Sex: Male

DRUGS (1)
  1. ROCEPHIN [Suspect]
     Indication: MENINGITIS
     Dosage: Dosage is uncertain.
     Route: 042

REACTIONS (1)
  - Cholelithiasis [Recovered/Resolved]
